FAERS Safety Report 10164931 (Version 1)
Quarter: 2014Q2

REPORT INFORMATION
  Report Type: Spontaneous
  Country: US (occurrence: US)
  Receive Date: 20140510
  Receipt Date: 20140510
  Transmission Date: 20141212
  Serious: No
  Sender: FDA-Public Use
  Company Number: US-BRISTOL-MYERS SQUIBB COMPANY-19628189

PATIENT
  Age: 34 Year
  Sex: Female
  Weight: 113.38 kg

DRUGS (1)
  1. BYDUREON [Suspect]
     Indication: TYPE 2 DIABETES MELLITUS
     Route: 058
     Dates: start: 201310

REACTIONS (6)
  - Abdominal pain upper [Unknown]
  - Nausea [Unknown]
  - Blood glucose increased [Unknown]
  - Lethargy [Unknown]
  - Decreased appetite [Unknown]
  - Malaise [Unknown]
